FAERS Safety Report 7519673-X (Version None)
Quarter: 2011Q2

REPORT INFORMATION
  Report Type: 
  Country: None (occurrence: None)
  Receive Date: 20110602
  Receipt Date: 20110518
  Transmission Date: 20111010
  Serious: Yes (Hospitalization)
  Sender: FDA-Public Use
  Company Number: US-BAYER-2011-043913

PATIENT
  Age: 47 Year
  Sex: Male
  Weight: 118 kg

DRUGS (2)
  1. ALEVE (CAPLET) [Suspect]
     Dosage: 2 DF, ONCE
     Route: 048
     Dates: start: 20110514, end: 20110514
  2. ALEVE (CAPLET) [Suspect]
     Indication: ANALGESIC THERAPY
     Dosage: 1 DF, ONCE
     Route: 048
     Dates: start: 20110301, end: 20110301

REACTIONS (15)
  - SLOW RESPONSE TO STIMULI [None]
  - LOSS OF CONSCIOUSNESS [None]
  - OEDEMA PERIPHERAL [None]
  - HEART RATE DECREASED [None]
  - FEELING HOT [None]
  - HYPOTENSION [None]
  - VISUAL IMPAIRMENT [None]
  - HYPERSENSITIVITY [None]
  - PRURITUS [None]
  - ERYTHEMA [None]
  - DIZZINESS [None]
  - BLINDNESS TRANSIENT [None]
  - RETCHING [None]
  - TONGUE PRURITUS [None]
  - SWOLLEN TONGUE [None]
